FAERS Safety Report 25824449 (Version 1)
Quarter: 2025Q3

REPORT INFORMATION
  Report Type: Spontaneous
  Country: US (occurrence: US)
  Receive Date: 20250919
  Receipt Date: 20250919
  Transmission Date: 20251021
  Serious: No
  Sender: AZURITY PHARMACEUTICALS
  Company Number: US-AZURITY PHARMACEUTICALS, INC.-AZR202507-002292

PATIENT
  Sex: Male

DRUGS (2)
  1. ALVESCO [Suspect]
     Active Substance: CICLESONIDE
     Indication: Emphysema
  2. ALVESCO [Suspect]
     Active Substance: CICLESONIDE
     Indication: Chest pain

REACTIONS (1)
  - Product use in unapproved indication [Unknown]
